FAERS Safety Report 9353839 (Version 3)
Quarter: 2013Q3

REPORT INFORMATION
  Report Type: Spontaneous
  Country: US (occurrence: US)
  Receive Date: 20130618
  Receipt Date: 20130719
  Transmission Date: 20140515
  Serious: Yes (Hospitalization, Other)
  Sender: FDA-Public Use
  Company Number: US-BAXTER-2013BAX022104

PATIENT
  Age: 63 Year
  Sex: Male

DRUGS (1)
  1. DIANEAL LOW CALCIUM (ULTRABAG) [Suspect]
     Indication: PERITONEAL DIALYSIS
     Route: 033
     Dates: start: 20130423, end: 201307

REACTIONS (6)
  - Road traffic accident [Not Recovered/Not Resolved]
  - Facial bones fracture [Recovering/Resolving]
  - Rib fracture [Recovering/Resolving]
  - Clostridium difficile infection [Recovering/Resolving]
  - Nosocomial infection [Recovering/Resolving]
  - Amnesia [Recovering/Resolving]
